FAERS Safety Report 24542517 (Version 1)
Quarter: 2024Q4

REPORT INFORMATION
  Report Type: Spontaneous
  Country: US (occurrence: US)
  Receive Date: 20241024
  Receipt Date: 20241024
  Transmission Date: 20250114
  Serious: No
  Sender: AMGEN
  Company Number: US-AMGEN-USASP2024198210

PATIENT
  Age: 77 Year
  Sex: Female

DRUGS (1)
  1. INEBILIZUMAB [Suspect]
     Active Substance: INEBILIZUMAB
     Indication: Neuromyelitis optica spectrum disorder
     Dosage: UNK (FIRST DOSE)
     Route: 065

REACTIONS (1)
  - Muscle contracture [Not Recovered/Not Resolved]
